FAERS Safety Report 19465164 (Version 1)
Quarter: 2021Q2

REPORT INFORMATION
  Report Type: Spontaneous
  Country: AT (occurrence: AT)
  Receive Date: 20210627
  Receipt Date: 20210627
  Transmission Date: 20210717
  Serious: Yes (Other)
  Sender: FDA-Public Use
  Company Number: AT-UCBSA-2021029417

PATIENT
  Age: 9 Year
  Sex: Female

DRUGS (6)
  1. LEVETIRACETAM. [Suspect]
     Active Substance: LEVETIRACETAM
     Dosage: 50 MILLIGRAM/KILOGRAM/DAY
  2. MIDAZOLAM. [Suspect]
     Active Substance: MIDAZOLAM
     Indication: SEIZURE
     Dosage: 10 MILLIGRAM
     Route: 002
  3. MIGLUSTAT. [Concomitant]
     Active Substance: MIGLUSTAT
     Indication: PRODUCT USED FOR UNKNOWN INDICATION
     Dosage: 400 MG/M2
  4. LEVETIRACETAM. [Suspect]
     Active Substance: LEVETIRACETAM
     Dosage: 70 MILLIGRAM/KILOGRAM/DAY
  5. LEVETIRACETAM. [Suspect]
     Active Substance: LEVETIRACETAM
     Indication: SEIZURE
     Dosage: 30 MILLIGRAM/KILOGRAM/DAY
  6. CLOBAZAM. [Suspect]
     Active Substance: CLOBAZAM
     Indication: SEIZURE
     Dosage: 0.15 MILLIGRAM/KILOGRAM/DAY

REACTIONS (6)
  - Aphasia [Unknown]
  - Multiple-drug resistance [Unknown]
  - Constipation [Unknown]
  - Seizure [Recovering/Resolving]
  - Vomiting [Unknown]
  - Diarrhoea [Unknown]
